FAERS Safety Report 6356103-8 (Version None)
Quarter: 2009Q3

REPORT INFORMATION
  Report Type: 
  Country: None (occurrence: None)
  Receive Date: 20090915
  Receipt Date: 20090708
  Transmission Date: 20100115
  Serious: No
  Sender: FDA-Public Use
  Company Number: US-BAYER-200925833NA

PATIENT
  Sex: Female

DRUGS (1)
  1. MIRENA [Suspect]
     Indication: MENSTRUATION IRREGULAR
     Dosage: AS USED: 20 ?G
     Route: 015
     Dates: start: 20080630

REACTIONS (2)
  - AMENORRHOEA [None]
  - MENORRHAGIA [None]
